FAERS Safety Report 5926027-6 (Version None)
Quarter: 2008Q3

REPORT INFORMATION
  Report Type: 
  Country: None (occurrence: None)
  Receive Date: 20080924
  Receipt Date: 20080618
  Transmission Date: 20090109
  Serious: No
  Sender: FDA-Public Use
  Company Number: US-WYE-H04600708

PATIENT
  Age: 47 Year
  Sex: Male

DRUGS (3)
  1. TORISEL [Suspect]
     Indication: RENAL CELL CARCINOMA
     Dosage: 25 MG 1X PER 1 WK, INTRAVENOUS : 15 MG 1X PER 1 WK, INTRAVENOUS : 20 MG 1X PER 1 WK, INTRAVENOUS
     Route: 042
     Dates: start: 20080201, end: 20080301
  2. TORISEL [Suspect]
     Indication: RENAL CELL CARCINOMA
     Dosage: 25 MG 1X PER 1 WK, INTRAVENOUS : 15 MG 1X PER 1 WK, INTRAVENOUS : 20 MG 1X PER 1 WK, INTRAVENOUS
     Route: 042
     Dates: start: 20080301, end: 20080501
  3. TORISEL [Suspect]
     Indication: RENAL CELL CARCINOMA
     Dosage: 25 MG 1X PER 1 WK, INTRAVENOUS : 15 MG 1X PER 1 WK, INTRAVENOUS : 20 MG 1X PER 1 WK, INTRAVENOUS
     Route: 042
     Dates: start: 20080501

REACTIONS (2)
  - RASH [None]
  - SUNBURN [None]
